FAERS Safety Report 19189611 (Version 2)
Quarter: 2021Q2

REPORT INFORMATION
  Report Type: Spontaneous
  Country: US (occurrence: US)
  Receive Date: 20210428
  Receipt Date: 20210603
  Transmission Date: 20210717
  Serious: No
  Sender: FDA-Public Use
  Company Number: US-BAYER-2021-131440

PATIENT
  Age: 17 Year
  Sex: Female
  Weight: 64.85 kg

DRUGS (3)
  1. DOXYCYCLINE HYCLATE. [Concomitant]
     Active Substance: DOXYCYCLINE HYCLATE
     Dosage: 1 DF, TID
     Route: 048
  2. KYLEENA [Suspect]
     Active Substance: LEVONORGESTREL
     Indication: CONTRACEPTION
     Dosage: 17.5 ?G PER DAY CONTINUOUSLY
     Route: 015
     Dates: start: 20210224, end: 20210419
  3. BETADINE GYNECOLOGICAL [Concomitant]

REACTIONS (3)
  - Menometrorrhagia [Not Recovered/Not Resolved]
  - Procedural pain [None]
  - Unintentional medical device removal [None]

NARRATIVE: CASE EVENT DATE: 20210224
